FAERS Safety Report 8761220 (Version 1)
Quarter: 2012Q4

REPORT INFORMATION
  Report Type: 
  Country: US (occurrence: US)
  Receive Date: 20120830
  Receipt Date: 20120830
  Transmission Date: 20130627
  Serious: Yes (Death, Hospitalization)
  Sender: FDA-Public Use
  Company Number: US-GLAXOSMITHKLINE-A0916630A

PATIENT
  Age: 66 Year
  Sex: Male

DRUGS (1)
  1. AVANDIA [Suspect]
     Indication: DIABETES MELLITUS
     Dosage: 8MGD Per day
     Route: 048
     Dates: start: 20010614, end: 20040922

REACTIONS (3)
  - Myocardial infarction [Fatal]
  - Coronary artery disease [Unknown]
  - Sudden cardiac death [Fatal]
